FAERS Safety Report 6359126-8 (Version None)
Quarter: 2009Q3

REPORT INFORMATION
  Report Type: 
  Country: None (occurrence: None)
  Receive Date: 20090917
  Receipt Date: 20070710
  Transmission Date: 20100115
  Serious: Yes (Hospitalization)
  Sender: FDA-Public Use
  Company Number: US-ASTRAZENECA-2009SE11153

PATIENT
  Age: 12959 Day
  Sex: Female

DRUGS (12)
  1. SEROQUEL [Suspect]
     Indication: SLEEP DISORDER
     Dosage: 25 MG-200 MG
     Route: 048
     Dates: start: 20010913, end: 20011206
  2. SEROQUEL [Suspect]
     Indication: TACHYPHRENIA
     Dosage: 25 MG-200 MG
     Route: 048
     Dates: start: 20010913, end: 20011206
  3. SEROQUEL [Suspect]
     Dosage: 50 MG-100 MG
     Route: 048
     Dates: start: 20020206
  4. SEROQUEL [Suspect]
     Dosage: 50 MG-100 MG
     Route: 048
     Dates: start: 20020206
  5. DEPAKOTE [Concomitant]
     Dosage: 125 MG-250 MG
     Route: 048
     Dates: start: 20010913, end: 20070212
  6. ZYPREXA [Concomitant]
     Route: 048
     Dates: start: 20011206
  7. LITHOBID [Concomitant]
     Route: 048
     Dates: start: 20020206
  8. LUNESTA [Concomitant]
     Route: 048
     Dates: start: 20060526
  9. AVANDAMET [Concomitant]
     Dates: start: 20060526
  10. RESTORIL [Concomitant]
     Dosage: 15 MG-30 MG
     Route: 048
     Dates: start: 20021015
  11. TRAZODONE [Concomitant]
     Dosage: 50 MG TABLET DISPENSED
     Route: 048
     Dates: start: 20020325
  12. NEURONTIN [Concomitant]
     Route: 048
     Dates: start: 20031020

REACTIONS (7)
  - ALANINE AMINOTRANSFERASE INCREASED [None]
  - AVOIDANT PERSONALITY DISORDER [None]
  - BIPOLAR DISORDER [None]
  - BIPOLAR I DISORDER [None]
  - DIABETES MELLITUS [None]
  - SCHIZOAFFECTIVE DISORDER BIPOLAR TYPE [None]
  - STRESS [None]
